FAERS Safety Report 8550069-8 (Version None)
Quarter: 2012Q3

REPORT INFORMATION
  Report Type: 
  Country: None (occurrence: None)
  Receive Date: 20120718
  Receipt Date: 20120704
  Transmission Date: 20120928
  Serious: Yes (Other)
  Sender: FDA-Public Use
  Company Number: AUR-APL-2012-03026

PATIENT
  Age: 36 Year
  Sex: Female

DRUGS (1)
  1. MINOCYCLINE HCL [Suspect]
     Indication: PRODUCT USED FOR UNKNOWN INDICATION
     Dosage: UNKNOWN

REACTIONS (6)
  - HEPATITIS [None]
  - VASCULITIS [None]
  - POLYARTERITIS NODOSA [None]
  - CHOLECYSTITIS [None]
  - PERONEAL NERVE PALSY [None]
  - MONONEUROPATHY MULTIPLEX [None]
